FAERS Safety Report 8424377 (Version 2)
Quarter: 2012Q4

REPORT INFORMATION
  Report Type: 
  Country: TW (occurrence: TW)
  Receive Date: 20120224
  Receipt Date: 20121205
  Transmission Date: 20130627
  Serious: Yes (Death, Other)
  Sender: FDA-Public Use
  Company Number: TW-RANBAXY-2012RR-52854

PATIENT
  Age: 62 Year
  Sex: Female

DRUGS (6)
  1. RISPERIDONE [Suspect]
     Indication: SCHIZOPHRENIA
     Dosage: 2 mg/day
     Route: 065
     Dates: start: 2004
  2. PALIPERIDONE [Suspect]
     Indication: SCHIZOPHRENIA
     Dosage: 3 mg/day
     Route: 065
  3. RISPERIDONE [Concomitant]
     Indication: SCHIZOPHRENIA
     Dosage: 2 mg/day
     Route: 065
  4. RISPERIDONE [Concomitant]
     Indication: SCHIZOPHRENIA
     Dosage: gradual titration to 4 mg/day
     Route: 065
  5. VALPROIC ACID [Concomitant]
     Indication: MANIA
     Dosage: 1000 mg/day
     Route: 065
  6. VALPROIC ACID [Concomitant]
     Indication: SCHIZOPHRENIA

REACTIONS (2)
  - Mania [Recovered/Resolved]
  - Drug withdrawal syndrome [Recovered/Resolved]
